FAERS Safety Report 25835253 (Version 1)
Quarter: 2025Q3

REPORT INFORMATION
  Report Type: Spontaneous
  Country: BR (occurrence: BR)
  Receive Date: 20250923
  Receipt Date: 20250923
  Transmission Date: 20251021
  Serious: Yes (Other)
  Sender: CHEPLAPHARM
  Company Number: BR-CHEPLA-2025011016

PATIENT
  Sex: Female
  Weight: 57 kg

DRUGS (4)
  1. CLONAZEPAM [Suspect]
     Active Substance: CLONAZEPAM
     Indication: Anxiety
     Route: 048
     Dates: start: 2010, end: 202507
  2. AMPLICTIL [Concomitant]
     Active Substance: CHLORPROMAZINE HYDROCHLORIDE
     Indication: Migraine
     Route: 048
     Dates: start: 2020, end: 202504
  3. TOPIRAMATE [Concomitant]
     Active Substance: TOPIRAMATE
     Indication: Migraine
     Dosage: 1 TABLET PER DAY. STARTED USE MANY YEARS AGO?DAILY DOSE: 1 DOSAGE FORM
     Route: 048
  4. METOPROLOL SUCCINATE [Concomitant]
     Active Substance: METOPROLOL SUCCINATE
     Indication: Migraine
     Dosage: 1 TABLET PER DAY. STARTED USE MANY YEARS AGO AND CONTINUES?DAILY DOSE: 1 DOSAGE FORM
     Route: 048

REACTIONS (8)
  - Autism spectrum disorder [Not Recovered/Not Resolved]
  - Bipolar disorder [Not Recovered/Not Resolved]
  - Binge eating [Not Recovered/Not Resolved]
  - Drug ineffective [Unknown]
  - Depression [Not Recovered/Not Resolved]
  - Migraine [Not Recovered/Not Resolved]
  - Quality of life decreased [Not Recovered/Not Resolved]
  - Product availability issue [Not Recovered/Not Resolved]

NARRATIVE: CASE EVENT DATE: 20160101
